FAERS Safety Report 10573289 (Version 4)
Quarter: 2015Q1

REPORT INFORMATION
  Report Type: Spontaneous
  Country: JP (occurrence: JP)
  Receive Date: 20141110
  Receipt Date: 20150105
  Transmission Date: 20150720
  Serious: Yes (Hospitalization)
  Sender: FDA-Public Use
  Company Number: JP-NOVOPROD-428040

PATIENT
  Age: 62 Year
  Sex: Male
  Weight: 44.3 kg

DRUGS (6)
  1. LEVEMIR [Suspect]
     Active Substance: INSULIN DETEMIR
     Dosage: 10 IU
     Route: 058
     Dates: start: 20101018
  2. NOVORAPID [Suspect]
     Active Substance: INSULIN ASPART
     Dosage: 18 IU
     Route: 058
     Dates: start: 20101018
  3. LEVEMIR [Suspect]
     Active Substance: INSULIN DETEMIR
     Indication: TYPE 2 DIABETES MELLITUS
     Dosage: 20 U, QD
     Route: 058
     Dates: start: 201003
  4. NOVORAPID [Suspect]
     Active Substance: INSULIN ASPART
     Indication: TYPE 2 DIABETES MELLITUS
     Dosage: 20 U, TID
     Route: 058
     Dates: start: 201003
  5. NOVORAPID [Suspect]
     Active Substance: INSULIN ASPART
     Dosage: 48 IU
     Route: 058
     Dates: start: 20100506
  6. LEVEMIR [Suspect]
     Active Substance: INSULIN DETEMIR
     Dosage: 18 IU
     Route: 058
     Dates: start: 20100506

REACTIONS (6)
  - Dehydration [Unknown]
  - Hypoglycaemia [Unknown]
  - Hypoglycaemia [Recovered/Resolved]
  - Hypoglycaemia [Recovered/Resolved]
  - Hypoglycaemia [Recovered/Resolved]
  - Diabetes mellitus inadequate control [Unknown]

NARRATIVE: CASE EVENT DATE: 20100310
